FAERS Safety Report 15887560 (Version 2)
Quarter: 2019Q4

REPORT INFORMATION
  Report Type: Report from Study
  Country: KR (occurrence: KR)
  Receive Date: 20190130
  Receipt Date: 20191210
  Transmission Date: 20200122
  Serious: Yes (Hospitalization)
  Sender: FDA-Public Use
  Company Number: KR-ROCHE-2214239

PATIENT
  Age: 39 Year
  Sex: Female
  Weight: 49.6 kg

DRUGS (16)
  1. DIABEX [Concomitant]
     Active Substance: METFORMIN HYDROCHLORIDE
     Indication: DIABETES MELLITUS
     Route: 048
  2. TAMIFLU [Concomitant]
     Active Substance: OSELTAMIVIR PHOSPHATE
     Indication: PNEUMONITIS
     Route: 065
     Dates: start: 20180307
  3. LEVOPLUS [LEVOFLOXACIN] [Concomitant]
     Indication: PNEUMONITIS
     Route: 065
     Dates: start: 20180307
  4. TRASTUZUMAB. [Suspect]
     Active Substance: TRASTUZUMAB
     Indication: BREAST CANCER
     Route: 042
     Dates: start: 20171013, end: 20171013
  5. ORAMEDY [Concomitant]
     Active Substance: TRIAMCINOLONE ACETONIDE
     Indication: PROPHYLAXIS
     Route: 048
     Dates: start: 20180207, end: 20180209
  6. NEUTROGIN [Concomitant]
     Active Substance: LENOGRASTIM
     Indication: NEUTROPHIL COUNT DECREASED
     Route: 058
     Dates: start: 20180206, end: 20180206
  7. NEUTROGIN [Concomitant]
     Active Substance: LENOGRASTIM
     Route: 058
     Dates: start: 20180205, end: 20180205
  8. BETADINE [Concomitant]
     Active Substance: POVIDONE-IODINE
  9. JANUVIA [Concomitant]
     Active Substance: SITAGLIPTIN PHOSPHATE
     Indication: DIABETES MELLITUS
     Route: 048
  10. TABAXIN [Concomitant]
     Active Substance: PIPERACILLIN SODIUM\TAZOBACTAM SODIUM
     Indication: NEUTROPHIL COUNT DECREASED
     Route: 065
     Dates: start: 20180205
  11. DIAMICRON MR [Concomitant]
     Active Substance: GLICLAZIDE
     Indication: DIABETES MELLITUS
     Route: 048
  12. CIPROFLOXACIN. [Concomitant]
     Active Substance: CIPROFLOXACIN
     Indication: PNEUMONITIS
     Route: 065
     Dates: start: 20180307
  13. MUCOSTEN [Concomitant]
     Indication: PNEUMONITIS
     Route: 065
     Dates: start: 20180307
  14. DOCETAXEL. [Suspect]
     Active Substance: DOCETAXEL
     Indication: BREAST CANCER
     Route: 042
     Dates: start: 20171013, end: 20171013
  15. PACETA [Concomitant]
     Indication: PNEUMONITIS
     Route: 065
  16. PERTUZUMAB. [Suspect]
     Active Substance: PERTUZUMAB
     Indication: BREAST CANCER
     Route: 042
     Dates: start: 20171013, end: 20171013

REACTIONS (2)
  - Pneumonitis [Recovered/Resolved]
  - Neutrophil count decreased [Recovered/Resolved]

NARRATIVE: CASE EVENT DATE: 20180205
